FAERS Safety Report 5962981-4 (Version None)
Quarter: 2008Q4

REPORT INFORMATION
  Report Type: 
  Country: None (occurrence: None)
  Receive Date: 20081120
  Receipt Date: 20081112
  Transmission Date: 20090506
  Serious: Yes (Disabling, Other)
  Sender: FDA-Public Use
  Company Number: 100#03#2008-05689

PATIENT
  Age: 49 Year
  Sex: Female

DRUGS (2)
  1. FLUCONAZOLE [Suspect]
     Indication: VULVOVAGINAL CANDIDIASIS
     Dosage: 15 MG, ORAL
     Route: 048
     Dates: start: 20081031
  2. ENZIRA (INFLUENZA VACCINE) [Concomitant]

REACTIONS (2)
  - DYSPNOEA [None]
  - EYE SWELLING [None]
